FAERS Safety Report 19141238 (Version 1)
Quarter: 2021Q2

REPORT INFORMATION
  Report Type: Spontaneous
  Country: US (occurrence: US)
  Receive Date: 20210415
  Receipt Date: 20210415
  Transmission Date: 20210717
  Serious: No
  Sender: FDA-Public Use
  Company Number: US-BRISTOL-MYERS SQUIBB COMPANY-BMS-2021-033252

PATIENT
  Age: 80 Year
  Sex: Female
  Weight: 55.3 kg

DRUGS (2)
  1. WARFARIN SODIUM. [Suspect]
     Active Substance: WARFARIN SODIUM
     Indication: PRODUCT USED FOR UNKNOWN INDICATION
     Dosage: UNK
     Route: 065
  2. REMODULIN [Suspect]
     Active Substance: TREPROSTINIL
     Indication: PULMONARY ARTERIAL HYPERTENSION
     Dosage: 0.102 MICROGRAM/KILOGRAM
     Route: 041
     Dates: start: 20120308

REACTIONS (3)
  - Catheter site haemorrhage [Unknown]
  - Catheter site erythema [Not Recovered/Not Resolved]
  - Catheter site pain [Unknown]

NARRATIVE: CASE EVENT DATE: 20210326
